FAERS Safety Report 6143783-5 (Version None)
Quarter: 2009Q2

REPORT INFORMATION
  Report Type: 
  Country: None (occurrence: None)
  Receive Date: 20090403
  Receipt Date: 20090326
  Transmission Date: 20091009
  Serious: Yes (Hospitalization)
  Sender: FDA-Public Use
  Company Number: PHHY2009GB10116

PATIENT
  Sex: Female

DRUGS (4)
  1. CLOZARIL [Suspect]
     Indication: SCHIZOPHRENIA
     Dosage: UNK
     Dates: start: 20070910
  2. CITALOPRAM [Concomitant]
     Indication: ANXIETY
     Dosage: 20 MG
     Route: 048
  3. LOVAZA [Concomitant]
     Dosage: 2 DF, BID
  4. RISPERIDONE [Concomitant]
     Dosage: 2 MG
     Route: 048

REACTIONS (4)
  - CONSTIPATION [None]
  - FALL [None]
  - HAEMOGLOBIN DECREASED [None]
  - SOMNOLENCE [None]
